FAERS Safety Report 7732407-9 (Version None)
Quarter: 2011Q3

REPORT INFORMATION
  Report Type: 
  Country: None (occurrence: None)
  Receive Date: 20110906
  Receipt Date: 20110826
  Transmission Date: 20111222
  Serious: Yes (Other)
  Sender: FDA-Public Use
  Company Number: US-ASTRAZENECA-2011SE48831

PATIENT
  Age: 56 Year
  Sex: Female

DRUGS (1)
  1. SEROQUEL XR [Suspect]
     Indication: BIPOLAR DISORDER
     Dosage: SUPPOSED TO RECEIVE 400 MG BUT RECEIVED 350 MG
     Route: 048
     Dates: start: 20100101

REACTIONS (10)
  - AGGRESSION [None]
  - ANGER [None]
  - FEELING ABNORMAL [None]
  - AGITATION [None]
  - DYSKINESIA [None]
  - DRUG DISPENSING ERROR [None]
  - DEPRESSED MOOD [None]
  - INCORRECT DOSE ADMINISTERED [None]
  - MENTAL DISORDER [None]
  - HEADACHE [None]
